FAERS Safety Report 6525920-3 (Version None)
Quarter: 2010Q1

REPORT INFORMATION
  Report Type: 
  Country: None (occurrence: None)
  Receive Date: 20100104
  Receipt Date: 20091228
  Transmission Date: 20100710
  Serious: Yes (Life-Threatening, Hospitalization)
  Sender: FDA-Public Use
  Company Number: FR-PFIZER INC-2009279341

PATIENT
  Age: 39 Year
  Sex: Female

DRUGS (9)
  1. SALAZOPYRIN [Suspect]
     Dosage: UNK G, 1X/DAY
     Route: 048
     Dates: start: 20090825, end: 20090907
  2. METHOTREXATE SODIUM [Suspect]
     Dosage: UNK
     Dates: start: 20050101, end: 20080101
  3. METHOTREXATE SODIUM [Suspect]
     Dosage: 4 DF, 1X/DAY
     Route: 048
     Dates: start: 20090909, end: 20090101
  4. VOLTAREN [Suspect]
     Dosage: 1 DF, 1X/DAY
     Route: 048
     Dates: start: 20090825, end: 20090909
  5. RIFINAH [Suspect]
     Dosage: UNK
     Dates: start: 20050101
  6. RIFINAH [Suspect]
     Dosage: 1 DF, 1X/DAY
     Route: 048
     Dates: start: 20090909, end: 20090914
  7. ACUPAN [Suspect]
     Dosage: UNK
     Dates: start: 20090825, end: 20090909
  8. NEXIUM [Suspect]
     Dosage: UNK
     Dates: start: 20090825, end: 20090909
  9. KLIPAL [Concomitant]
     Indication: RHEUMATOID ARTHRITIS

REACTIONS (4)
  - DRUG RASH WITH EOSINOPHILIA AND SYSTEMIC SYMPTOMS [None]
  - LYMPHADENOPATHY [None]
  - PYREXIA [None]
  - RASH MACULO-PAPULAR [None]
